FAERS Safety Report 18312807 (Version 1)
Quarter: 2020Q3

REPORT INFORMATION
  Report Type: Spontaneous
  Country: CA (occurrence: CA)
  Receive Date: 20200925
  Receipt Date: 20200925
  Transmission Date: 20201103
  Serious: Yes (Hospitalization)
  Sender: FDA-Public Use
  Company Number: CA-CELGENEUS-CAN-20200905910

PATIENT
  Age: 64 Year
  Sex: Female
  Weight: 43.2 kg

DRUGS (5)
  1. ABRAXANE [Suspect]
     Active Substance: PACLITAXEL
     Dosage: 140 MILLIGRAM
     Route: 041
     Dates: start: 20200917
  2. ABRAXANE [Suspect]
     Active Substance: PACLITAXEL
     Indication: PANCREATIC CARCINOMA METASTATIC
     Dosage: 140 MILLIGRAM
     Route: 041
     Dates: start: 20200902
  3. AMLODIPINE [Concomitant]
     Active Substance: AMLODIPINE BESYLATE
     Indication: PRODUCT USED FOR UNKNOWN INDICATION
     Route: 065
  4. DEXAMETHASONE. [Concomitant]
     Active Substance: DEXAMETHASONE
     Indication: PRODUCT USED FOR UNKNOWN INDICATION
     Route: 065
  5. ONDANSETRON [Concomitant]
     Active Substance: ONDANSETRON
     Indication: PRODUCT USED FOR UNKNOWN INDICATION
     Route: 065

REACTIONS (1)
  - Hydronephrosis [Unknown]

NARRATIVE: CASE EVENT DATE: 202009
